FAERS Safety Report 20316529 (Version 1)
Quarter: 2022Q1

REPORT INFORMATION
  Report Type: Spontaneous
  Country: US (occurrence: None)
  Receive Date: 20220107
  Receipt Date: 20220107
  Transmission Date: 20220424
  Serious: No
  Sender: FDA-Public Use
  Company Number: None

PATIENT
  Age: 27 Year
  Sex: Male
  Weight: 90.9 kg

DRUGS (16)
  1. XELODA [Suspect]
     Active Substance: CAPECITABINE
     Indication: Colorectal cancer
     Dosage: OTHER FREQUENCY : BID FOR 7/14 DAYS;?
     Route: 048
     Dates: start: 20211201
  2. VITAMINS [Concomitant]
     Active Substance: VITAMINS
  3. FERROUS SULFATE [Concomitant]
     Active Substance: FERROUS SULFATE
  4. Metoprolol succinate ER 25mg [Concomitant]
  5. OXYCODONE [Concomitant]
     Active Substance: OXYCODONE
  6. FUROSEMIDE [Concomitant]
     Active Substance: FUROSEMIDE
  7. POTASSIUM CHLORIDE [Concomitant]
     Active Substance: POTASSIUM CHLORIDE
  8. FOLIC ACID [Concomitant]
     Active Substance: FOLIC ACID
  9. Prochlorperazine 10mg [Concomitant]
  10. ONDANSETRON [Concomitant]
     Active Substance: ONDANSETRON
  11. LOPERAMIDE [Concomitant]
     Active Substance: LOPERAMIDE
  12. METHADONE [Concomitant]
     Active Substance: METHADONE HYDROCHLORIDE
  13. GABAPENTIN [Concomitant]
     Active Substance: GABAPENTIN
  14. OXALIPLATIN [Concomitant]
     Active Substance: OXALIPLATIN
  15. BEVACIZUMAB [Concomitant]
     Active Substance: BEVACIZUMAB
  16. IRINOTECAN [Concomitant]
     Active Substance: IRINOTECAN

REACTIONS (1)
  - Infection [None]

NARRATIVE: CASE EVENT DATE: 20220107
